FAERS Safety Report 4916803-0 (Version None)
Quarter: 2006Q1

REPORT INFORMATION
  Report Type: 
  Country: None (occurrence: None)
  Receive Date: 20060220
  Receipt Date: 20060206
  Transmission Date: 20060701
  Serious: Yes (Life-Threatening, Hospitalization)
  Sender: FDA-Public Use
  Company Number: JP-ROCHE-435057

PATIENT
  Age: 62 Year
  Sex: Female

DRUGS (7)
  1. PANALDINE [Suspect]
     Indication: CEREBRAL INFARCTION
     Route: 048
     Dates: start: 20051101, end: 20051201
  2. ACECOL [Concomitant]
     Route: 048
  3. CARDENALIN [Concomitant]
     Route: 048
  4. ADALAT [Concomitant]
     Route: 048
  5. DIOVAN [Concomitant]
     Route: 048
  6. CEROCRAL [Concomitant]
     Route: 048
  7. IPRIFLAVONE [Concomitant]
     Dosage: TRADE NAME REPORTED AS: OLICOCK.
     Route: 048

REACTIONS (7)
  - BLOOD PRESSURE DECREASED [None]
  - BLOOD SODIUM DECREASED [None]
  - HALLUCINATION [None]
  - HALLUCINATIONS, MIXED [None]
  - HYPOAESTHESIA [None]
  - ILEUS [None]
  - PORPHYRIA ACUTE [None]
